FAERS Safety Report 19612310 (Version 2)
Quarter: 2021Q3

REPORT INFORMATION
  Report Type: Other
  Country: CN (occurrence: CN)
  Receive Date: 20210727
  Receipt Date: 20210920
  Transmission Date: 20211014
  Serious: Yes (Other)
  Sender: FDA-Public Use
  Company Number: CN-ROCHE-2876700

PATIENT

DRUGS (6)
  1. TORIPALIMAB. [Suspect]
     Active Substance: TORIPALIMAB
     Indication: NON-SMALL CELL LUNG CANCER
     Route: 065
  2. PEMBROLIZUMAB. [Suspect]
     Active Substance: PEMBROLIZUMAB
     Indication: NON-SMALL CELL LUNG CANCER
     Route: 065
  3. BEVACIZUMAB. [Suspect]
     Active Substance: BEVACIZUMAB
     Indication: NON-SMALL CELL LUNG CANCER
     Route: 065
  4. APATINIB MESYLATE [Suspect]
     Active Substance: APATINIB
     Indication: NON-SMALL CELL LUNG CANCER
     Route: 065
  5. NIVOLUMAB [Suspect]
     Active Substance: NIVOLUMAB
     Indication: NON-SMALL CELL LUNG CANCER
     Route: 065
  6. CAMRELIZUMAB [Suspect]
     Active Substance: CAMRELIZUMAB
     Indication: NON-SMALL CELL LUNG CANCER
     Route: 065

REACTIONS (17)
  - Dyspnoea [Unknown]
  - Hepatotoxicity [Unknown]
  - Fatigue [Unknown]
  - Rash [Unknown]
  - Pyrexia [Unknown]
  - Hypothyroidism [Unknown]
  - Pancreatitis [Unknown]
  - Haemorrhage [Unknown]
  - Pruritus [Unknown]
  - Hyperthyroidism [Unknown]
  - Pneumonitis [Unknown]
  - Headache [Unknown]
  - Leukopenia [Unknown]
  - Stomatitis [Unknown]
  - Palmar-plantar erythrodysaesthesia syndrome [Unknown]
  - Diarrhoea [Unknown]
  - Proteinuria [Unknown]
